FAERS Safety Report 7278898-1 (Version None)
Quarter: 2011Q1

REPORT INFORMATION
  Report Type: 
  Country: None (occurrence: None)
  Receive Date: 20110207
  Receipt Date: 20110117
  Transmission Date: 20110831
  Serious: Yes (Other)
  Sender: FDA-Public Use
  Company Number: US-BAYER-2011-005901

PATIENT
  Age: 49 Year
  Sex: Female
  Weight: 57 kg

DRUGS (5)
  1. ALEVE (CAPLET) [Suspect]
     Indication: EYE PAIN
     Dosage: UNK
     Route: 048
     Dates: start: 20100301
  2. LYRICA [Suspect]
     Indication: TRIGEMINAL NEURALGIA
     Dosage: 25 MG, QD
     Dates: start: 20101125, end: 20110102
  3. ALEVE (CAPLET) [Suspect]
     Indication: PAIN
  4. PREVACID [Suspect]
     Dosage: UNK
     Route: 048
     Dates: start: 20100301
  5. LYRICA [Suspect]
     Dosage: 50 MG, QD
     Dates: start: 20110102

REACTIONS (10)
  - PHARYNGEAL OEDEMA [None]
  - OEDEMA PERIPHERAL [None]
  - ABDOMINAL DISCOMFORT [None]
  - THROAT TIGHTNESS [None]
  - TONGUE DISCOLOURATION [None]
  - GASTRITIS [None]
  - GINGIVAL SWELLING [None]
  - DEPRESSION [None]
  - HYPOAESTHESIA [None]
  - GINGIVAL PAIN [None]
